FAERS Safety Report 9011236 (Version 3)
Quarter: 2013Q1

REPORT INFORMATION
  Report Type: Spontaneous
  Country: US (occurrence: US)
  Receive Date: 20130109
  Receipt Date: 20130307
  Transmission Date: 20140127
  Serious: No
  Sender: FDA-Public Use
  Company Number: US-BIOGENIDEC-2013BI000562

PATIENT
  Age: 47 None
  Sex: Female

DRUGS (3)
  1. AVONEX [Suspect]
     Indication: MULTIPLE SCLEROSIS
     Route: 030
     Dates: start: 20120716
  2. AVONEX [Suspect]
     Indication: MULTIPLE SCLEROSIS
     Route: 030
     Dates: start: 20121024
  3. AVONEX [Suspect]
     Indication: MULTIPLE SCLEROSIS
     Route: 030
     Dates: start: 201211

REACTIONS (15)
  - Back pain [Not Recovered/Not Resolved]
  - Panic reaction [Recovered/Resolved]
  - Multiple sclerosis [Unknown]
  - Speech disorder [Unknown]
  - Spinal pain [Unknown]
  - Gait disturbance [Recovered/Resolved]
  - Chest pain [Recovered/Resolved]
  - Dyspnoea [Not Recovered/Not Resolved]
  - Insomnia [Recovered/Resolved]
  - Headache [Not Recovered/Not Resolved]
  - Neck pain [Not Recovered/Not Resolved]
  - Influenza like illness [Recovered/Resolved]
  - Pain [Unknown]
  - Muscular weakness [Unknown]
  - Asthenia [Recovered/Resolved]
